FAERS Safety Report 6611886-4 (Version None)
Quarter: 2010Q1

REPORT INFORMATION
  Report Type: 
  Country: None (occurrence: None)
  Receive Date: 20100226
  Receipt Date: 20100226
  Transmission Date: 20100710
  Serious: Yes (Other)
  Sender: FDA-Public Use
  Company Number: None

PATIENT
  Age: 62 Year
  Sex: Female
  Weight: 63.6 kg

DRUGS (1)
  1. COBIX -200MG (CELECOXIB) 200 MG CIPLA LTD (MUMBAI, INDIA) [Suspect]
     Indication: RHEUMATOID ARTHRITIS
     Dosage: 200 MG ONCE DAILY ORAL (047)
     Dates: start: 20100219, end: 20100223

REACTIONS (4)
  - DRUG HYPERSENSITIVITY [None]
  - DRUG INEFFECTIVE [None]
  - HYPOAESTHESIA [None]
  - PRODUCT SUBSTITUTION ISSUE [None]
